FAERS Safety Report 6547732-7 (Version None)
Quarter: 2010Q1

REPORT INFORMATION
  Report Type: 
  Country: None (occurrence: None)
  Receive Date: 20100123
  Receipt Date: 20100118
  Transmission Date: 20100710
  Serious: Yes (Hospitalization, Disabling, Other)
  Sender: FDA-Public Use
  Company Number: FI-JNJFOC-20100106375

PATIENT
  Age: 72 Year
  Sex: Male

DRUGS (5)
  1. TAVANIC [Suspect]
     Indication: UROSEPSIS
     Route: 048
  2. PREDNISOLONE [Suspect]
     Indication: DRUG USE FOR UNKNOWN INDICATION
     Route: 065
  3. AMLODIPINE [Concomitant]
     Route: 065
  4. SELOKEEN 50 [Concomitant]
     Route: 065
  5. NEXIUM [Concomitant]
     Route: 065

REACTIONS (4)
  - ABASIA [None]
  - PAIN IN EXTREMITY [None]
  - TENDON PAIN [None]
  - TENDON RUPTURE [None]
